FAERS Safety Report 5968735-7 (Version None)
Quarter: 2008Q4

REPORT INFORMATION
  Report Type: 
  Country: None (occurrence: None)
  Receive Date: 20081126
  Receipt Date: 20081121
  Transmission Date: 20090506
  Serious: Yes (Other)
  Sender: FDA-Public Use
  Company Number: BE-ALLERGAN-0812419US

PATIENT
  Age: 46 Year

DRUGS (2)
  1. BOTOX [Suspect]
     Indication: DRUG USE FOR UNKNOWN INDICATION
  2. UNKNOWN THYROID MEDICATION [Concomitant]
     Indication: THYROID DISORDER

REACTIONS (1)
  - HEPATIC FUNCTION ABNORMAL [None]
